FAERS Safety Report 4784392-X (Version None)
Quarter: 2005Q3

REPORT INFORMATION
  Report Type: 
  Country: None (occurrence: None)
  Receive Date: 20050930
  Receipt Date: 20050912
  Transmission Date: 20060218
  Serious: Yes (Hospitalization, Other)
  Sender: FDA-Public Use
  Company Number: CA-ABBOTT-05P-028-0310955-00

PATIENT
  Sex: Male
  Weight: 71.732 kg

DRUGS (14)
  1. BIAXIN XL [Suspect]
     Indication: PNEUMONIA
     Route: 048
  2. BIAXIN XL [Suspect]
     Indication: LOWER RESPIRATORY TRACT INFECTION
  3. RAMIPRIL [Concomitant]
     Indication: DRUG USE FOR UNKNOWN INDICATION
     Route: 048
  4. ATENOLOL [Concomitant]
     Indication: ANGINA PECTORIS
     Route: 048
  5. ATORVASTATIN [Concomitant]
     Indication: CORONARY ARTERY SURGERY
     Route: 048
  6. MELOXICAM [Concomitant]
     Indication: BACK PAIN
     Route: 048
  7. OXYGEN [Concomitant]
     Indication: RESPIRATORY DISORDER
  8. AMITRIPTYLINE HCL [Concomitant]
     Indication: DRUG USE FOR UNKNOWN INDICATION
     Route: 048
  9. ASPIRIN [Concomitant]
     Indication: DRUG USE FOR UNKNOWN INDICATION
     Route: 048
  10. RAMIPRIL [Concomitant]
     Indication: CORONARY ARTERY SURGERY
     Route: 048
  11. QUINOLONE [Concomitant]
     Indication: DRUG USE FOR UNKNOWN INDICATION
  12. ASPIRIN [Concomitant]
     Indication: DRUG USE FOR UNKNOWN INDICATION
     Route: 048
  13. NITROSPRAY [Concomitant]
     Indication: DRUG USE FOR UNKNOWN INDICATION
  14. AMITRIPTYLINE HCL [Concomitant]

REACTIONS (2)
  - DYSPNOEA [None]
  - HYPERSENSITIVITY [None]
